FAERS Safety Report 5259917-0 (Version None)
Quarter: 2007Q1

REPORT INFORMATION
  Report Type: 
  Country: None (occurrence: None)
  Receive Date: 20070309
  Receipt Date: 20070306
  Transmission Date: 20070707
  Serious: Yes (Hospitalization)
  Sender: FDA-Public Use
  Company Number: IT-ROCHE-486011

PATIENT
  Age: 61 Year
  Sex: Female

DRUGS (2)
  1. ROCEPHIN [Suspect]
     Indication: PNEUMONIA
     Dosage: STRENGTH AND FORMULATION REPORTED AS 1 GR VIAL
     Route: 030
     Dates: start: 20070213, end: 20070213
  2. LANSOX [Concomitant]
     Indication: DRUG USE FOR UNKNOWN INDICATION
     Dosage: ROUTE REPORTED AS OS
     Route: 050

REACTIONS (2)
  - COUGH [None]
  - DYSPNOEA [None]
